FAERS Safety Report 9335427 (Version 3)
Quarter: 2013Q4

REPORT INFORMATION
  Report Type: Report from Study
  Country: ES (occurrence: ES)
  Receive Date: 20130605
  Receipt Date: 20131122
  Transmission Date: 20140711
  Serious: Yes (Other)
  Sender: FDA-Public Use
  Company Number: ES-VERTEX PHARMACEUTICALS INC-2013-006773

PATIENT
  Age: 54 Year
  Sex: Male

DRUGS (3)
  1. TELAPREVIR [Suspect]
     Indication: CHRONIC HEPATITIS C
     Dosage: 1125 MG, BID
     Route: 048
  2. RIBAVIRIN [Concomitant]
     Indication: CHRONIC HEPATITIS C
     Dosage: 1200 MG, QD
     Route: 065
  3. PEG-INTERFERON [Concomitant]
     Indication: HEPATITIS C
     Dosage: 180 ?G, QW
     Route: 065

REACTIONS (3)
  - Rash [Recovered/Resolved]
  - Anaemia [Unknown]
  - Pruritus [Recovered/Resolved]
